FAERS Safety Report 12336276 (Version 2)
Quarter: 2016Q2

REPORT INFORMATION
  Report Type: Spontaneous
  Country: US (occurrence: US)
  Receive Date: 20160505
  Receipt Date: 20160506
  Transmission Date: 20160815
  Serious: No
  Sender: FDA-Public Use
  Company Number: US-PFIZER INC-2016243451

PATIENT
  Sex: Female
  Weight: 118 kg

DRUGS (7)
  1. EFFEXOR XR [Suspect]
     Active Substance: VENLAFAXINE HYDROCHLORIDE
     Indication: POST-TRAUMATIC STRESS DISORDER
     Dosage: 75 MG, 1X/DAY
     Route: 048
     Dates: start: 2015, end: 20160417
  2. MELATONIN [Concomitant]
     Active Substance: MELATONIN
     Indication: INSOMNIA
     Dosage: 3 MG, 1X/DAY, AT NIGHT
  3. EFFEXOR XR [Suspect]
     Active Substance: VENLAFAXINE HYDROCHLORIDE
     Dosage: 75 MG, 1X/DAY
     Route: 048
     Dates: start: 2016
  4. METFORMIN [Concomitant]
     Active Substance: METFORMIN HYDROCHLORIDE
     Indication: METABOLIC SYNDROME
     Dosage: 500 MG
  5. VITAMIN D [Concomitant]
     Active Substance: CHOLECALCIFEROL
     Dosage: 3000 IU, DAILY
  6. EFFEXOR XR [Suspect]
     Active Substance: VENLAFAXINE HYDROCHLORIDE
     Indication: MAJOR DEPRESSION
     Dosage: 150 MG, 1X/DAY
     Route: 048
     Dates: start: 20160418, end: 2016
  7. VITAMIN C [Concomitant]
     Active Substance: ASCORBIC ACID
     Dosage: 500 MG, DAILY

REACTIONS (6)
  - Condition aggravated [Unknown]
  - Urticaria [Recovering/Resolving]
  - Hypersensitivity [Unknown]
  - Abnormal dreams [Unknown]
  - Mydriasis [Unknown]
  - Insomnia [Unknown]

NARRATIVE: CASE EVENT DATE: 20160430
